FAERS Safety Report 9396249 (Version 4)
Quarter: 2013Q4

REPORT INFORMATION
  Report Type: Report from Study
  Country: US (occurrence: US)
  Receive Date: 20130711
  Receipt Date: 20131025
  Transmission Date: 20140711
  Serious: No
  Sender: FDA-Public Use
  Company Number: US-VERTEX PHARMACEUTICALS INC-2013-007860

PATIENT
  Age: 48 Year
  Sex: Male
  Weight: 98 kg

DRUGS (8)
  1. VX-950 (TELAPREVIR) [Suspect]
     Indication: HEPATITIS C
     Dosage: 750 MG, TID
     Route: 048
     Dates: start: 20130518
  2. VX-950 (TELAPREVIR) [Suspect]
     Dosage: 2 DF, BID
     Route: 048
     Dates: start: 201307, end: 201309
  3. RIBAVIRIN [Suspect]
     Indication: HEPATITIS C
     Dosage: 3 DF, BID
     Route: 048
     Dates: start: 20130518
  4. RIBAVIRIN [Suspect]
     Dosage: 3TABS AM AND 2 TABS PM
     Route: 048
     Dates: start: 201307
  5. PEGASYS [Suspect]
     Indication: HEPATITIS C
     Dosage: 180 ?G, QW
     Route: 058
     Dates: start: 20130518
  6. PEGASYS [Suspect]
     Dosage: 135 ?G, QW
     Route: 058
     Dates: start: 201307, end: 201309
  7. PEGASYS [Suspect]
     Dosage: 90 ?G, QW
     Route: 058
  8. NORCO [Concomitant]
     Indication: PAIN
     Dosage: 975 MG, QD

REACTIONS (9)
  - Formication [Not Recovered/Not Resolved]
  - Paraesthesia [Not Recovered/Not Resolved]
  - Lymphadenopathy [Not Recovered/Not Resolved]
  - Lymph node pain [Not Recovered/Not Resolved]
  - Infection [Not Recovered/Not Resolved]
  - Incorrect dose administered [Unknown]
  - Testicular pain [Not Recovered/Not Resolved]
  - White blood cell count decreased [Not Recovered/Not Resolved]
  - Pruritus [Not Recovered/Not Resolved]
